FAERS Safety Report 12571876 (Version 1)
Quarter: 2016Q3

REPORT INFORMATION
  Report Type: Report from Study
  Country: US (occurrence: US)
  Receive Date: 20160719
  Receipt Date: 20160719
  Transmission Date: 20161109
  Serious: Yes (Other)
  Sender: FDA-Public Use
  Company Number: US-GILEAD-2016-0217995

PATIENT
  Age: 62 Year
  Sex: Female

DRUGS (2)
  1. NITROFURANTOIN MACROCRYSTALS [Concomitant]
     Active Substance: NITROFURANTOIN
  2. LEDIPASVIR/SOFOSBUVIR [Suspect]
     Active Substance: LEDIPASVIR\SOFOSBUVIR
     Indication: CHRONIC HEPATITIS C
     Dosage: 1 DF, QD
     Route: 048
     Dates: start: 20160522

REACTIONS (12)
  - Muscular weakness [Unknown]
  - Back pain [Unknown]
  - Bedridden [Unknown]
  - Muscle spasms [Unknown]
  - Cystitis [Unknown]
  - Eye disorder [Unknown]
  - Pollakiuria [Unknown]
  - Urinary incontinence [Unknown]
  - Eye discharge [Unknown]
  - Kidney infection [Unknown]
  - Gait disturbance [Unknown]
  - Lacrimation increased [Unknown]
